FAERS Safety Report 6241841-8 (Version None)
Quarter: 2009Q2

REPORT INFORMATION
  Report Type: 
  Country: None (occurrence: None)
  Receive Date: 20090623
  Receipt Date: 20090611
  Transmission Date: 20091009
  Serious: Yes (Other)
  Sender: FDA-Public Use
  Company Number: US-PFIZER INC-2009199439

PATIENT
  Sex: Female

DRUGS (10)
  1. AROMASIN [Suspect]
     Indication: BREAST CANCER
     Dosage: 25 MG, 1X/DAY
     Route: 048
     Dates: start: 20090201
  2. ANASTROZOLE [Suspect]
     Indication: BREAST CANCER
     Dosage: UNK
  3. FEMARA [Suspect]
     Indication: BREAST CANCER
     Dosage: UNK
  4. ALLEGRA [Concomitant]
     Dosage: UNK
  5. VITAMIN D [Concomitant]
     Dosage: UNK
  6. ASCORBIC ACID [Concomitant]
     Dosage: UNK
  7. LOVAZA [Concomitant]
     Dosage: UNK
  8. MULTI-VITAMINS [Concomitant]
     Dosage: UNK
  9. METHYLCELLULOSE [Concomitant]
     Dosage: UNK
  10. ZOMETA [Concomitant]
     Dosage: UNK

REACTIONS (3)
  - FATIGUE [None]
  - PALPITATIONS [None]
  - VENTRICULAR EXTRASYSTOLES [None]
